FAERS Safety Report 10010959 (Version 1)
Quarter: 2014Q1

REPORT INFORMATION
  Report Type: Spontaneous
  Country: US (occurrence: US)
  Receive Date: 20140314
  Receipt Date: 20140314
  Transmission Date: 20141002
  Serious: No
  Sender: FDA-Public Use
  Company Number: US-ENDO PHARMACEUTICALS INC.-OXYC20130008

PATIENT
  Sex: Male
  Weight: 90.8 kg

DRUGS (3)
  1. OXYCODONE HCL 30MG [Suspect]
     Indication: BACK PAIN
     Route: 048
  2. OXYCODONE HCL 30MG [Suspect]
     Indication: NECK PAIN
     Route: 048
  3. GABAPENTIN [Concomitant]
     Indication: NEURALGIA
     Dosage: UNKNOWN
     Route: 065

REACTIONS (1)
  - Drug ineffective [Not Recovered/Not Resolved]
